FAERS Safety Report 23361987 (Version 2)
Quarter: 2024Q1

REPORT INFORMATION
  Report Type: Spontaneous
  Country: US (occurrence: US)
  Receive Date: 20240103
  Receipt Date: 20240221
  Transmission Date: 20240409
  Serious: Yes (Other)
  Sender: FDA-Public Use
  Company Number: US-BAYER-2023A184359

PATIENT
  Age: 15 Year
  Sex: Male

DRUGS (1)
  1. KOVALTRY [Suspect]
     Active Substance: ANTIHEMOPHILIC FACTOR, HUMAN RECOMBINANT
     Dosage: PATIENT RECEIVED A DOSE (6000 IU)
     Route: 042

REACTIONS (2)
  - Haemorrhage [None]
  - Pain [None]

NARRATIVE: CASE EVENT DATE: 20231201
